FAERS Safety Report 15587016 (Version 1)
Quarter: 2018Q4

REPORT INFORMATION
  Report Type: Spontaneous
  Country: IT (occurrence: IT)
  Receive Date: 20181105
  Receipt Date: 20181105
  Transmission Date: 20190205
  Serious: Yes (Hospitalization, Other)
  Sender: FDA-Public Use
  Company Number: IT-SA-2018SA302262

PATIENT
  Age: 85 Year
  Sex: Female

DRUGS (11)
  1. NITRODERM [Concomitant]
     Active Substance: NITROGLYCERIN
     Dosage: UNK
  2. CATAPRESAN [CLONIDINE HYDROCHLORIDE] [Concomitant]
  3. INSULIN LISPRO [Suspect]
     Active Substance: INSULIN LISPRO
     Indication: TYPE 2 DIABETES MELLITUS
     Dosage: 9 KIU, QD
     Dates: start: 20150101, end: 20180606
  4. FUROSEMIDE. [Concomitant]
     Active Substance: FUROSEMIDE
  5. IRBESARTAN. [Suspect]
     Active Substance: IRBESARTAN
     Indication: TYPE 2 DIABETES MELLITUS
     Dosage: 150 MG, QD
     Dates: start: 20100101, end: 20180606
  6. FERRO-GRAD [Concomitant]
     Active Substance: FERROUS SULFATE
  7. LANSOPRAZOLE. [Concomitant]
     Active Substance: LANSOPRAZOLE
  8. GLUCOPHAGE [Suspect]
     Active Substance: METFORMIN HYDROCHLORIDE
     Indication: TYPE 2 DIABETES MELLITUS
     Dosage: 1000 MG, QD
     Route: 048
     Dates: start: 20100101, end: 20180606
  9. BISOPROLOL HEMIFUMARATE [Concomitant]
     Active Substance: BISOPROLOL FUMARATE
     Dosage: UNK
  10. AMLODIPINE [Concomitant]
     Active Substance: AMLODIPINE BESYLATE
  11. CARDIOASPIRIN [Concomitant]
     Active Substance: ASPIRIN

REACTIONS (5)
  - Electrolyte imbalance [Recovering/Resolving]
  - Acute kidney injury [Recovering/Resolving]
  - Dyspnoea [Recovering/Resolving]
  - Hypothermia [Recovering/Resolving]
  - Hypoglycaemia [Recovering/Resolving]

NARRATIVE: CASE EVENT DATE: 20180606
